FAERS Safety Report 22010604 (Version 1)
Quarter: 2023Q1

REPORT INFORMATION
  Report Type: Spontaneous
  Country: US (occurrence: US)
  Receive Date: 20230220
  Receipt Date: 20230220
  Transmission Date: 20230418
  Serious: No
  Sender: FDA-Public Use
  Company Number: US-APOTEX-2023AP000063

PATIENT
  Sex: Male

DRUGS (1)
  1. AZELASTINE HYDROCHLORIDE [Suspect]
     Active Substance: AZELASTINE HYDROCHLORIDE
     Indication: Product used for unknown indication
     Dosage: 2 DOSAGE FORM, BID (1 SPRAY IN EACH NOSTRIL TWICE A DAY)
     Route: 045

REACTIONS (3)
  - Product delivery mechanism issue [Unknown]
  - Product dose omission issue [Unknown]
  - Device defective [Unknown]
